FAERS Safety Report 7324646-6 (Version None)
Quarter: 2011Q1

REPORT INFORMATION
  Report Type: 
  Country: None (occurrence: None)
  Receive Date: 20110301
  Receipt Date: 20110218
  Transmission Date: 20110831
  Serious: Yes (Other)
  Sender: FDA-Public Use
  Company Number: PHHY2011US14391

PATIENT
  Age: 67 Year
  Sex: Male

DRUGS (4)
  1. LEUCOVORIN [Suspect]
     Indication: COLON CANCER METASTATIC
  2. FLUOROURACIL [Suspect]
     Indication: COLON CANCER METASTATIC
  3. BEVACIZUMAB [Suspect]
     Indication: COLON CANCER METASTATIC
  4. OXALIPLATIN [Suspect]
     Indication: COLON CANCER METASTATIC

REACTIONS (3)
  - PANCREATITIS ACUTE [None]
  - PANCREATIC MASS [None]
  - ABDOMINAL PAIN UPPER [None]
